FAERS Safety Report 5847038-5 (Version None)
Quarter: 2008Q3

REPORT INFORMATION
  Report Type: 
  Country: None (occurrence: None)
  Receive Date: 20080815
  Receipt Date: 20080806
  Transmission Date: 20090109
  Serious: Yes (Death)
  Sender: FDA-Public Use
  Company Number: US-PURDUE-USA_2008_0034303

PATIENT
  Age: 47 Year
  Sex: Male

DRUGS (6)
  1. DILAUDID [Suspect]
     Indication: POSTOPERATIVE ANALGESIA
     Dosage: UNK, UNK
     Route: 065
     Dates: start: 20060404, end: 20060404
  2. OXYCONTIN [Suspect]
     Indication: POSTOPERATIVE ANALGESIA
     Dosage: 40 MG, SINGLE
     Route: 048
  3. ATIVAN [Suspect]
     Indication: POSTOPERATIVE ANALGESIA
     Dates: start: 20060404, end: 20060404
  4. MARCAINE [Suspect]
     Indication: POSTOPERATIVE ANALGESIA
     Dosage: UNK, UNK
     Route: 042
  5. DEMEROL [Suspect]
     Indication: POSTOPERATIVE ANALGESIA
     Dates: start: 20080404
  6. VICODIN [Concomitant]
     Indication: ARTHRALGIA

REACTIONS (3)
  - CARDIAC ARREST [None]
  - PAIN [None]
  - RESPIRATORY ARREST [None]
